FAERS Safety Report 7863126-6 (Version None)
Quarter: 2011Q4

REPORT INFORMATION
  Report Type: 
  Country: None (occurrence: None)
  Receive Date: 20111027
  Receipt Date: 20101128
  Transmission Date: 20120403
  Serious: No
  Sender: FDA-Public Use
  Company Number: US-AMGEN-TCS435151

PATIENT
  Age: 39 Year
  Sex: Female

DRUGS (2)
  1. ENBREL [Suspect]
     Indication: RHEUMATOID ARTHRITIS
     Dosage: 50 MG, QWK
     Route: 058
     Dates: start: 20100814
  2. ENBREL [Suspect]
     Indication: SJOGREN'S SYNDROME

REACTIONS (14)
  - VULVOVAGINAL DRYNESS [None]
  - INJECTION SITE ERYTHEMA [None]
  - ORAL CANDIDIASIS [None]
  - PAIN IN EXTREMITY [None]
  - MUSCLE SPASMS [None]
  - PARAESTHESIA [None]
  - CHEST PAIN [None]
  - FATIGUE [None]
  - ARTHRALGIA [None]
  - HYPERSENSITIVITY [None]
  - COUGH [None]
  - INJECTION SITE SWELLING [None]
  - HYPOAESTHESIA [None]
  - DRUG INEFFECTIVE [None]
